FAERS Safety Report 9143809 (Version 1)
Quarter: 2013Q1

REPORT INFORMATION
  Report Type: Report from Study
  Country: US (occurrence: US)
  Receive Date: 20130306
  Receipt Date: 20130306
  Transmission Date: 20140127
  Serious: Yes (Hospitalization, Other)
  Sender: FDA-Public Use
  Company Number: US-ROCHE-800452

PATIENT
  Age: 50 Year
  Sex: Female

DRUGS (14)
  1. DOCETAXEL [Suspect]
     Indication: PRODUCT USED FOR UNKNOWN INDICATION
     Route: 042
     Dates: start: 20110620
  2. CARBOPLATIN [Suspect]
     Indication: PRODUCT USED FOR UNKNOWN INDICATION
     Route: 042
     Dates: start: 20110620
  3. TRASTUZUMAB [Suspect]
     Indication: BREAST CANCER
     Route: 042
     Dates: start: 20110620
  4. LORAZEPAM [Concomitant]
  5. CALCIUM CARBONATE [Concomitant]
  6. MULTIVITAMIN NOS [Concomitant]
  7. PERCOCET [Concomitant]
  8. COLECALCIFEROL [Concomitant]
  9. CYANOCOBALAMIN [Concomitant]
  10. OMEGA-3 MARINE TRIGLYCERIDES [Concomitant]
  11. PROMETHAZINE [Concomitant]
  12. VICODIN [Concomitant]
  13. GRANULOCYTE COLONY STIMULATING FACTOR [Concomitant]
  14. VITAMIN NOS [Concomitant]

REACTIONS (2)
  - Pyrexia [Recovered/Resolved]
  - Hypertransaminasaemia [Unknown]
